FAERS Safety Report 10570740 (Version 1)
Quarter: 2014Q4

REPORT INFORMATION
  Report Type: Spontaneous
  Country: US (occurrence: None)
  Receive Date: 20141106
  Receipt Date: 20141106
  Transmission Date: 20150529
  Serious: No
  Sender: FDA-Public Use
  Company Number: None

PATIENT
  Age: 62 Year
  Sex: Male

DRUGS (1)
  1. OLYSIO [Suspect]
     Active Substance: SIMEPREVIR
     Indication: HEPATITIS C
     Dosage: 1 CAPSULE
     Route: 048
     Dates: start: 20141101

REACTIONS (2)
  - Seizure [None]
  - Rectal haemorrhage [None]

NARRATIVE: CASE EVENT DATE: 20141101
